FAERS Safety Report 4432452-5 (Version None)
Quarter: 2004Q3

REPORT INFORMATION
  Report Type: 
  Country: None (occurrence: None)
  Receive Date: 20040820
  Receipt Date: 20040810
  Transmission Date: 20050211
  Serious: Yes (Hospitalization, Other)
  Sender: FDA-Public Use
  Company Number: HQWYE240412AUG04

PATIENT
  Age: 37 Year
  Sex: Female

DRUGS (11)
  1. RAPAMUNE [Suspect]
     Indication: PROPHYLAXIS AGAINST TRANSPLANT REJECTION
     Dosage: 4 MG 1X PER 1 DAY, ORAL
     Route: 048
     Dates: start: 20040118
  2. CATAPRES-TTS-1 [Concomitant]
  3. PREDNISONE TAB [Concomitant]
  4. LABETALOL HCL [Concomitant]
  5. BACTRIM [Concomitant]
  6. NORVASC [Concomitant]
  7. VALCYTE [Concomitant]
  8. PROTONIX [Concomitant]
  9. PROGRAF [Concomitant]
  10. GLUCOTROL XL [Concomitant]
  11. MYCELEX [Concomitant]

REACTIONS (3)
  - BLOOD CREATININE INCREASED [None]
  - HYPERTENSION [None]
  - PULMONARY OEDEMA [None]
